FAERS Safety Report 5315213-4 (Version None)
Quarter: 2007Q2

REPORT INFORMATION
  Report Type: 
  Country: None (occurrence: None)
  Receive Date: 20070502
  Receipt Date: 20070423
  Transmission Date: 20071010
  Serious: Yes (Hospitalization, Disabling)
  Sender: FDA-Public Use
  Company Number: US-MERCK-0704USA05180

PATIENT
  Age: 84 Year
  Sex: Female

DRUGS (6)
  1. VYTORIN [Suspect]
     Indication: HYPERCHOLESTEROLAEMIA
     Route: 048
     Dates: start: 20070401, end: 20070422
  2. COREG [Concomitant]
     Indication: HYPERCHOLESTEROLAEMIA
     Route: 065
  3. PLAVIX [Concomitant]
     Route: 065
  4. IMURAN [Concomitant]
     Route: 065
  5. RENAGEL [Concomitant]
     Route: 065
  6. CYCLOSPORINE [Concomitant]
     Route: 065

REACTIONS (4)
  - ASTHENIA [None]
  - BLOOD CREATINE PHOSPHOKINASE INCREASED [None]
  - BLOOD CREATININE INCREASED [None]
  - MYALGIA [None]
